FAERS Safety Report 16958492 (Version 1)
Quarter: 2019Q4

REPORT INFORMATION
  Report Type: Other
  Country: FR (occurrence: FR)
  Receive Date: 20191024
  Receipt Date: 20191024
  Transmission Date: 20200122
  Serious: Yes (Other)
  Sender: FDA-Public Use
  Company Number: FR-GE HEALTHCARE LIFE SCIENCES-2019CSU005402

PATIENT

DRUGS (3)
  1. HYDROCORTANCYL [Suspect]
     Active Substance: PREDNISONE
     Indication: BACK PAIN
     Route: 008
  2. VISIPAQUE [Suspect]
     Active Substance: IODIXANOL
     Indication: JOINT INJECTION
     Dosage: 1 ML, SINGLE
     Route: 008
  3. VISIPAQUE [Suspect]
     Active Substance: IODIXANOL
     Indication: PRODUCT USED FOR UNKNOWN INDICATION

REACTIONS (3)
  - Condition aggravated [Not Recovered/Not Resolved]
  - Lumbar vertebral fracture [Not Recovered/Not Resolved]
  - Off label use [Recovered/Resolved]

NARRATIVE: CASE EVENT DATE: 201708
